FAERS Safety Report 8093814-0 (Version None)
Quarter: 2012Q1

REPORT INFORMATION
  Report Type: 
  Country: None (occurrence: None)
  Receive Date: 20120129
  Receipt Date: 20110912
  Transmission Date: 20120608
  Serious: No
  Sender: FDA-Public Use
  Company Number: US-ABBOTT-11P-163-0854209-00

PATIENT
  Age: 41 Year
  Sex: Male

DRUGS (2)
  1. NIASPAN [Concomitant]
     Indication: BLOOD CHOLESTEROL
     Dosage: 500 MG DAILY
  2. HUMIRA [Suspect]
     Indication: PSORIASIS
     Dates: start: 20110827

REACTIONS (3)
  - FATIGUE [None]
  - HEADACHE [None]
  - FEELING ABNORMAL [None]
